FAERS Safety Report 6443015-4 (Version None)
Quarter: 2009Q4

REPORT INFORMATION
  Report Type: 
  Country: None (occurrence: None)
  Receive Date: 20091117
  Receipt Date: 20091113
  Transmission Date: 20100525
  Serious: Yes (Death)
  Sender: FDA-Public Use
  Company Number: PHHY2009BR50013

PATIENT
  Sex: Male

DRUGS (2)
  1. FORASEQ [Suspect]
     Dosage: 12/200 MCG
  2. FORASEQ [Suspect]
     Dosage: 12/400 MCG

REACTIONS (1)
  - DEATH [None]
